FAERS Safety Report 9177913 (Version 1)
Quarter: 2013Q1

REPORT INFORMATION
  Report Type: Spontaneous
  Country: US (occurrence: None)
  Receive Date: 20130318
  Receipt Date: 20130318
  Transmission Date: 20140127
  Serious: Yes (Hospitalization)
  Sender: FDA-Public Use
  Company Number: 1626016

PATIENT
  Sex: Male

DRUGS (5)
  1. FLUDARABINE PHOSPHATE [Suspect]
     Indication: CHRONIC LYMPHOCYTIC LEUKAEMIA
  2. FLUDARABINE PHOSPHATE [Suspect]
     Indication: CHRONIC LYMPHOCYTIC LEUKAEMIA
  3. FLUDARABINE PHOSPHATE [Suspect]
     Indication: IDIOPATHIC THROMBOCYTOPENIC PURPURA
  4. BENDAMUSTINE [Suspect]
  5. CORTICOSTEROIDS [Suspect]
     Indication: IDIOPATHIC THROMBOCYTOPENIC PURPURA

REACTIONS (12)
  - Varicella [None]
  - Gastrointestinal viral infection [None]
  - Idiopathic thrombocytopenic purpura [None]
  - Rash [None]
  - Pyrexia [None]
  - Flank pain [None]
  - Bowel movement irregularity [None]
  - Infusion related reaction [None]
  - Hepatitis [None]
  - Pancreatitis [None]
  - Ileus [None]
  - Tachypnoea [None]
